FAERS Safety Report 6543995-2 (Version None)
Quarter: 2010Q1

REPORT INFORMATION
  Report Type: 
  Country: None (occurrence: None)
  Receive Date: 20100120
  Receipt Date: 20100118
  Transmission Date: 20100710
  Serious: Yes (Hospitalization)
  Sender: FDA-Public Use
  Company Number: PHHO2009FR05290

PATIENT
  Sex: Female
  Weight: 82 kg

DRUGS (3)
  1. AFINITOR [Suspect]
     Indication: BREAST CANCER
     Dosage: OPEN-LABEL
     Route: 048
     Dates: start: 20090327, end: 20090410
  2. PACLITAXEL [Suspect]
     Indication: BREAST CANCER
     Dosage: OPEN-LABEL
     Route: 042
     Dates: start: 20090327, end: 20090403
  3. TRASTUZUMAB [Concomitant]
     Indication: BREAST CANCER
     Dosage: OPEN LABEL
     Route: 042
     Dates: start: 20090327, end: 20090403

REACTIONS (1)
  - THROMBOCYTOPENIA [None]
